FAERS Safety Report 16301618 (Version 1)
Quarter: 2019Q2

REPORT INFORMATION
  Report Type: Spontaneous
  Country: GB (occurrence: GB)
  Receive Date: 20190511
  Receipt Date: 20190511
  Transmission Date: 20190711
  Serious: Yes (Other)
  Sender: FDA-Public Use
  Company Number: GB-TEVA-2019-GB-1047214

PATIENT
  Age: 68 Year
  Sex: Female
  Weight: 61 kg

DRUGS (5)
  1. SALBUTAMOL [Concomitant]
     Active Substance: ALBUTEROL
     Dosage: RELIEVER THERAPY
     Route: 055
     Dates: start: 20170904
  2. VAGIFEM [Concomitant]
     Active Substance: ESTRADIOL
     Dosage: USE AS DIRECTED
     Dates: start: 20170904
  3. MICONAZOLE. [Concomitant]
     Active Substance: MICONAZOLE
     Dosage: APPLY TO THE AFFECTED AREA
     Dates: start: 20190320
  4. FEXOFENADINE [Suspect]
     Active Substance: FEXOFENADINE\FEXOFENADINE HYDROCHLORIDE
     Indication: URTICARIA
     Dates: start: 20190312
  5. BETAMETHASONE VALERATE. [Concomitant]
     Active Substance: BETAMETHASONE VALERATE
     Dosage: APPLY TO THE AFFECTED AREA ONCE OR TWICE DAILY
     Dates: start: 20190320

REACTIONS (3)
  - Erythema [Recovered/Resolved]
  - Eczema [Recovered/Resolved]
  - Blister [Recovered/Resolved]
